FAERS Safety Report 7065192-7 (Version None)
Quarter: 2010Q4

REPORT INFORMATION
  Report Type: 
  Country: None (occurrence: None)
  Receive Date: 20101019
  Receipt Date: 20101013
  Transmission Date: 20110411
  Serious: Yes (Death)
  Sender: FDA-Public Use
  Company Number: 2010P1001597

PATIENT
  Age: 37 Year
  Sex: Female
  Weight: 65.7716 kg

DRUGS (1)
  1. FENTANYL [Suspect]

REACTIONS (1)
  - DEATH [None]
